FAERS Safety Report 9928392 (Version 1)
Quarter: 2014Q1

REPORT INFORMATION
  Report Type: Spontaneous
  Country: US (occurrence: None)
  Receive Date: 20140226
  Receipt Date: 20140226
  Transmission Date: 20141002
  Serious: Yes (Other)
  Sender: FDA-Public Use
  Company Number: None

PATIENT
  Age: 75 Year
  Sex: Female
  Weight: 98.3 kg

DRUGS (3)
  1. RIVAROXIBAN [Suspect]
     Indication: PULMONARY EMBOLISM
     Route: 048
     Dates: start: 20131026
  2. RIVAROXIBAN [Suspect]
     Indication: ATRIAL FIBRILLATION
     Route: 048
     Dates: start: 20131026
  3. RIVAROXIBAN [Suspect]
     Indication: DISEASE RECURRENCE
     Route: 048
     Dates: start: 20131026

REACTIONS (2)
  - Abdominal wall haematoma [None]
  - Injection site haematoma [None]
